FAERS Safety Report 16927930 (Version 1)
Quarter: 2019Q4

REPORT INFORMATION
  Report Type: Spontaneous
  Country: US (occurrence: US)
  Receive Date: 20191017
  Receipt Date: 20191017
  Transmission Date: 20200122
  Serious: No
  Sender: FDA-Public Use
  Company Number: US-JNJFOC-20191016628

PATIENT
  Sex: Female
  Weight: 83.99 kg

DRUGS (4)
  1. SUDAFED 24 HOUR [Suspect]
     Active Substance: PSEUDOEPHEDRINE HYDROCHLORIDE
     Indication: NASAL CONGESTION
     Dosage: 2 TABLETS IN TOTAL 1 SUDAFED 24 HOUR RELIEF AND 1 SUDAFED 12 HOUR RELIEF ONE TABLET EACH?DRUG LAST A
     Route: 048
     Dates: start: 20191008
  2. SUDAFED 24 HOUR [Suspect]
     Active Substance: PSEUDOEPHEDRINE HYDROCHLORIDE
     Indication: PARANASAL SINUS DISCOMFORT
  3. SUDAFED 12 HOUR [Suspect]
     Active Substance: PSEUDOEPHEDRINE HYDROCHLORIDE
     Indication: PARANASAL SINUS DISCOMFORT
  4. SUDAFED 12 HOUR [Suspect]
     Active Substance: PSEUDOEPHEDRINE HYDROCHLORIDE
     Indication: NASAL CONGESTION
     Dosage: 2 TABLETS IN TOTAL 1 SUDAFED 24 HOUR RELIEF AND 1 SUDAFED 12 HOUR RELIEF ONE TABLET EACH?DRUG LAST A
     Route: 048
     Dates: start: 20191008

REACTIONS (1)
  - Accidental overdose [Unknown]
